FAERS Safety Report 15165380 (Version 1)
Quarter: 2018Q3

REPORT INFORMATION
  Report Type: Spontaneous
  Country: US (occurrence: US)
  Receive Date: 20180719
  Receipt Date: 20180719
  Transmission Date: 20181010
  Serious: Yes (Death, Life-Threatening, Hospitalization, Other)
  Sender: FDA-Public Use
  Company Number: US-GLENMARK PHARMACEUTICALS-2018GMK036545

PATIENT
  Age: 54 Year
  Sex: Male

DRUGS (8)
  1. METHOTREXATE. [Concomitant]
     Active Substance: METHOTREXATE
     Indication: PROPHYLAXIS AGAINST GRAFT VERSUS HOST DISEASE
     Dosage: UNK, (ON DAYS + 1, 3, 6, AND 11)
     Route: 065
  2. MELPHALAN. [Concomitant]
     Active Substance: MELPHALAN
     Indication: PRODUCT USED FOR UNKNOWN INDICATION
     Dosage: 50 MG/M2, UNK (ON DAYS ? 3 TO ? 2)
     Route: 065
  3. DEXAMETHASONE. [Concomitant]
     Active Substance: DEXAMETHASONE
     Indication: PRODUCT USED FOR UNKNOWN INDICATION
     Dosage: UNK
     Route: 065
  4. SIROLIMUS. [Concomitant]
     Active Substance: SIROLIMUS
     Dosage: UNK (STARTING DAY ? 3)
     Route: 065
  5. TACROLIMUS. [Suspect]
     Active Substance: TACROLIMUS
     Indication: PROPHYLAXIS AGAINST GRAFT VERSUS HOST DISEASE
     Dosage: UNK (STARTING DAY +146)
     Route: 065
  6. SIROLIMUS. [Concomitant]
     Active Substance: SIROLIMUS
     Indication: PROPHYLAXIS AGAINST GRAFT VERSUS HOST DISEASE
     Dosage: UNK (STARTING DAY +188 TO +211)
     Route: 065
  7. FLUDARABINE [Concomitant]
     Active Substance: FLUDARABINE PHOSPHATE
     Indication: PRODUCT USED FOR UNKNOWN INDICATION
     Dosage: 30 MG/M2, UNK (ON DAYS ? 6 TO ? 2)
     Route: 065
  8. TACROLIMUS. [Suspect]
     Active Substance: TACROLIMUS
     Dosage: UNK (STARTING DAY ? 3 TO +27 DAY)
     Route: 065

REACTIONS (4)
  - Thrombotic microangiopathy [Fatal]
  - Gastrointestinal haemorrhage [Not Recovered/Not Resolved]
  - Pneumatosis intestinalis [Unknown]
  - Haemoglobin decreased [Unknown]
